FAERS Safety Report 10782919 (Version 1)
Quarter: 2015Q1

REPORT INFORMATION
  Report Type: Spontaneous
  Country: US (occurrence: US)
  Receive Date: 20150210
  Receipt Date: 20150210
  Transmission Date: 20150721
  Serious: No
  Sender: FDA-Public Use
  Company Number: US-GLAXOSMITHKLINE-A1076930A

PATIENT

DRUGS (5)
  1. ISENTRESS [Concomitant]
     Active Substance: RALTEGRAVIR POTASSIUM
  2. RIBAVIRIN. [Concomitant]
     Active Substance: RIBAVIRIN
  3. VALTREX [Suspect]
     Active Substance: VALACYCLOVIR HYDROCHLORIDE
     Indication: GENITAL HERPES
     Route: 048
     Dates: start: 2012
  4. NORVIR [Concomitant]
     Active Substance: RITONAVIR
  5. SOFOSBUVIR [Concomitant]
     Active Substance: SOFOSBUVIR

REACTIONS (1)
  - Formication [Unknown]

NARRATIVE: CASE EVENT DATE: 2012
